FAERS Safety Report 25879018 (Version 3)
Quarter: 2025Q4

REPORT INFORMATION
  Report Type: Spontaneous
  Country: US (occurrence: US)
  Receive Date: 20251003
  Receipt Date: 20251120
  Transmission Date: 20260117
  Serious: No
  Sender: PFIZER
  Company Number: US-PFIZER INC-PV202500117998

PATIENT
  Age: 67 Year
  Sex: Female

DRUGS (1)
  1. IBRANCE [Suspect]
     Active Substance: PALBOCICLIB
     Indication: Breast cancer female
     Dosage: 125 MG

REACTIONS (11)
  - Fatigue [Unknown]
  - Arthralgia [Unknown]
  - Dizziness [Unknown]
  - Nasal herpes [Unknown]
  - Epistaxis [Unknown]
  - Hunger [Unknown]
  - Asthenia [Unknown]
  - Bone pain [Unknown]
  - Headache [Unknown]
  - Diarrhoea [Unknown]
  - Malaise [Unknown]
